FAERS Safety Report 5991131-3 (Version None)
Quarter: 2008Q4

REPORT INFORMATION
  Report Type: 
  Country: None (occurrence: None)
  Receive Date: 20081211
  Receipt Date: 20081209
  Transmission Date: 20090506
  Serious: Yes (Hospitalization)
  Sender: FDA-Public Use
  Company Number: NL-PURDUE-GBR_2008_0004610

PATIENT
  Age: 0 None
  Sex: Female

DRUGS (4)
  1. OXYCONTIN [Suspect]
     Indication: OSTEOPOROSIS
     Dosage: 5 MG, BID
     Route: 065
     Dates: start: 20080424, end: 20080501
  2. ALENDRONIC ACID [Concomitant]
     Indication: OSTEOPOROSIS
     Dosage: 20 MG, DAILY
     Route: 065
     Dates: start: 20020101
  3. CAD [Concomitant]
     Indication: OSTEOPOROSIS
     Dosage: 500 MG, UNK
     Route: 065
     Dates: start: 20020101, end: 20080424
  4. FENTANYL-100 [Concomitant]
     Indication: OSTEOPOROSIS
     Dosage: 12 MCG, DAILY
     Route: 065
     Dates: end: 20080929

REACTIONS (1)
  - OSTEOPOROTIC FRACTURE [None]
